FAERS Safety Report 12840061 (Version 4)
Quarter: 2019Q3

REPORT INFORMATION
  Report Type: Report from Study
  Country: US (occurrence: US)
  Receive Date: 20161012
  Receipt Date: 20190730
  Transmission Date: 20191004
  Serious: Yes (Hospitalization, Other)
  Sender: FDA-Public Use
  Company Number: US-CELGENEUS-USA-2016052803

PATIENT
  Age: 83 Year
  Sex: Male
  Weight: 77.3 kg

DRUGS (56)
  1. FLUTICASONE. [Concomitant]
     Active Substance: FLUTICASONE
     Indication: PROPHYLAXIS
     Dosage: 200 MICROGRAM
     Route: 045
     Dates: start: 20160505, end: 20160512
  2. FUROSEMIDE. [Concomitant]
     Active Substance: FUROSEMIDE
     Dosage: 40 MILLIGRAM
     Route: 048
     Dates: start: 20120907
  3. HYZAAR [Concomitant]
     Active Substance: HYDROCHLOROTHIAZIDE\LOSARTAN POTASSIUM
     Indication: HYPERTENSION
     Dosage: 100-25MG
     Route: 048
     Dates: start: 20120907
  4. PROBIOTIC [Concomitant]
     Active Substance: PROBIOTICS NOS
     Indication: DYSPEPSIA
     Dosage: 1 CAPSULE
     Route: 048
     Dates: start: 20120907
  5. MULTIVITAMINS [Concomitant]
     Active Substance: VITAMINS
     Indication: NUTRITIONAL SUPPLEMENTATION
     Dosage: 1 CAPSULE
     Route: 048
     Dates: start: 20120907
  6. SELENIUM [Concomitant]
     Active Substance: SELENIUM
     Indication: SUPPLEMENTATION THERAPY
     Dosage: 30 MICROGRAM
     Route: 048
     Dates: start: 20120907
  7. L-GLUTAMINE [Concomitant]
     Indication: SUPPLEMENTATION THERAPY
     Dosage: 1 TEASPOON
     Route: 048
     Dates: start: 20120907
  8. BACTRIM [Concomitant]
     Active Substance: SULFAMETHOXAZOLE\TRIMETHOPRIM
     Indication: PROPHYLAXIS
     Dosage: .4286 TABLET
     Route: 048
     Dates: start: 20130704, end: 20160427
  9. DEXAMETHASONE. [Suspect]
     Active Substance: DEXAMETHASONE
     Dosage: 20 MILLIGRAM
     Route: 048
     Dates: start: 20160330
  10. VITAMIN C [Concomitant]
     Active Substance: ASCORBIC ACID
     Route: 048
     Dates: start: 20160505
  11. MEMANTINE. [Concomitant]
     Active Substance: MEMANTINE
     Dosage: 20 MILLIGRAM
     Route: 048
     Dates: start: 20160506
  12. ONDANSETRON [Concomitant]
     Active Substance: ONDANSETRON
     Indication: PRODUCT USED FOR UNKNOWN INDICATION
     Dosage: 16 MILLIGRAM
     Route: 041
  13. POLYETHYLENE GLYCOL 3350. [Concomitant]
     Active Substance: POLYETHYLENE GLYCOL 3350
     Indication: LAXATIVE SUPPORTIVE CARE
     Dosage: 17 GRAM
     Route: 048
  14. POLYETHYLENE GLYCOL 3350. [Concomitant]
     Active Substance: POLYETHYLENE GLYCOL 3350
     Route: 048
     Dates: start: 20130301
  15. ANDRODERM [Concomitant]
     Active Substance: TESTOSTERONE
     Indication: HYPOGONADISM
     Route: 065
     Dates: start: 20120907
  16. BETA CAROTENE. [Concomitant]
     Active Substance: BETA CAROTENE
     Indication: SUPPLEMENTATION THERAPY
     Dosage: 15000 IU (INTERNATIONAL UNIT)
     Route: 048
     Dates: start: 20120907
  17. ACY-241 [Suspect]
     Active Substance: CITARINOSTAT
     Indication: PLASMA CELL MYELOMA
     Dosage: 360 MILLIGRAM
     Route: 048
     Dates: start: 20160330
  18. DEXAMETHASONE. [Suspect]
     Active Substance: DEXAMETHASONE
     Route: 065
     Dates: start: 20130530, end: 20160218
  19. CALCIUM VITAMIN D [Concomitant]
     Active Substance: CALCIUM\VITAMIN D
     Dosage: 600MG/400IU
     Route: 048
     Dates: start: 20120907
  20. POTASSIUM CHLORIDE. [Concomitant]
     Active Substance: POTASSIUM CHLORIDE
     Indication: PROPHYLAXIS
     Dosage: 60 MILLIEQUIVALENTS
     Route: 048
     Dates: start: 20120907
  21. ASA [Concomitant]
     Active Substance: ASPIRIN
     Indication: PROPHYLAXIS
     Dosage: 325 MILLIGRAM
     Route: 048
     Dates: start: 20120907
  22. CARVEDILOL. [Concomitant]
     Active Substance: CARVEDILOL
     Dosage: 12.5 MILLIGRAM
     Route: 048
     Dates: start: 20160506
  23. ULTRA CHROMIUM PICOLINATE [Concomitant]
     Indication: SUPPLEMENTATION THERAPY
     Dosage: 500 MICROGRAM
     Route: 048
     Dates: start: 20120907
  24. POMALYST [Suspect]
     Active Substance: POMALIDOMIDE
     Indication: PLASMA CELL MYELOMA
     Dosage: 4 MILLIGRAM
     Route: 048
     Dates: start: 20160330
  25. ALBUTEROL. [Concomitant]
     Active Substance: ALBUTEROL
     Dosage: 360 MICROGRAM
     Route: 065
     Dates: start: 20160505, end: 20160512
  26. VITAMIN C [Concomitant]
     Active Substance: ASCORBIC ACID
     Indication: SUPPLEMENTATION THERAPY
     Dosage: 2000 MILLIGRAM
     Route: 048
     Dates: start: 20120907
  27. COENZYME Q [Concomitant]
     Indication: SUPPLEMENTATION THERAPY
     Dosage: 100 MILLIGRAM
     Route: 048
     Dates: start: 20120907
  28. TYLENOL [Concomitant]
     Active Substance: ACETAMINOPHEN
     Indication: BACK PAIN
     Route: 048
     Dates: start: 20130919
  29. TRAMADOL. [Concomitant]
     Active Substance: TRAMADOL
     Indication: BACK PAIN
     Route: 048
     Dates: start: 20140723
  30. ZOMETA [Concomitant]
     Active Substance: ZOLEDRONIC ACID
     Indication: PROPHYLAXIS
     Dosage: .1333 MILLIGRAM
     Route: 041
     Dates: start: 20150108
  31. NORMAL SALINE [Concomitant]
     Active Substance: SODIUM CHLORIDE
     Route: 041
     Dates: start: 20160427, end: 20160427
  32. ENOXAPARIN [Concomitant]
     Active Substance: ENOXAPARIN
     Indication: THROMBOSIS PROPHYLAXIS
     Dosage: 40 MILLIGRAM
     Route: 058
  33. DEXAMETHASONE. [Suspect]
     Active Substance: DEXAMETHASONE
     Indication: PLASMA CELL MYELOMA
     Route: 065
     Dates: start: 20120915, end: 20130115
  34. DEXAMETHASONE. [Suspect]
     Active Substance: DEXAMETHASONE
     Route: 065
     Dates: start: 20130312, end: 20130412
  35. ALBUTEROL. [Concomitant]
     Active Substance: ALBUTEROL
     Indication: PROPHYLAXIS
     Dosage: 8 DOSAGE FORMS
     Route: 065
     Dates: start: 20160506
  36. CALCIUM VITAMIN D [Concomitant]
     Active Substance: CALCIUM\VITAMIN D
     Indication: SUPPLEMENTATION THERAPY
     Dosage: 2 TABLET
     Route: 048
     Dates: start: 20160506
  37. TOLTERODINE [Concomitant]
     Active Substance: TOLTERODINE
     Indication: CONSTIPATION
     Dosage: 4 MILLIGRAM
     Route: 048
     Dates: start: 20160506, end: 20160512
  38. MORPHINE [Concomitant]
     Active Substance: MORPHINE
     Indication: PRODUCT USED FOR UNKNOWN INDICATION
     Dosage: 24 MILLIGRAM
     Route: 041
  39. VALACYCLOVIR [Concomitant]
     Active Substance: VALACYCLOVIR HYDROCHLORIDE
     Indication: PROPHYLAXIS
     Dosage: 500 MILLIGRAM
     Route: 048
     Dates: start: 20120907
  40. FLUOCINONIDE. [Concomitant]
     Active Substance: FLUOCINONIDE
     Indication: ANTIINFLAMMATORY THERAPY
     Route: 061
     Dates: start: 20120907
  41. GLUCOSAMINE CHONDROITIN [Concomitant]
     Active Substance: CHONDROITIN SULFATE (BOVINE)\GLUCOSAMINE HYDROCHLORIDE
     Indication: ARTHRITIS
     Dosage: 2 CAPSULE
     Route: 048
     Dates: start: 20120907
  42. LECITHIN [Concomitant]
     Active Substance: LECITHIN
     Indication: SUPPLEMENTATION THERAPY
     Dosage: 2400 MILLIGRAM
     Route: 048
     Dates: start: 20120907
  43. NORMAL SALINE [Concomitant]
     Active Substance: SODIUM CHLORIDE
     Indication: BLOOD CREATININE INCREASED
     Route: 041
     Dates: start: 20160420, end: 20160420
  44. DOCUSATE [Concomitant]
     Active Substance: DOCUSATE
     Indication: CONSTIPATION PROPHYLAXIS
     Dosage: 200 MILLIGRAM
     Route: 048
     Dates: start: 20130301
  45. DITROPAN [Concomitant]
     Active Substance: OXYBUTYNIN CHLORIDE
     Indication: HYPERTONIC BLADDER
     Dosage: 15 MILLIGRAM
     Route: 048
     Dates: start: 20120907
  46. RESVERA WINE [Concomitant]
     Indication: SUPPLEMENTATION THERAPY
     Dosage: 1000 MILLIGRAM
     Route: 048
     Dates: start: 20120907
  47. DEXAMETHASONE. [Suspect]
     Active Substance: DEXAMETHASONE
     Dosage: 20 MILLIGRAM
     Route: 048
  48. MEMANTINE. [Concomitant]
     Active Substance: MEMANTINE
     Indication: AMNESIA
     Dosage: 56 MILLIGRAM
     Route: 048
     Dates: start: 20130808
  49. VITAMIN D3 [Concomitant]
     Active Substance: CHOLECALCIFEROL
     Indication: SUPPLEMENTATION THERAPY
     Dosage: 4000 IU (INTERNATIONAL UNIT)
     Route: 048
     Dates: start: 20120907
  50. WARFARIN [Concomitant]
     Active Substance: WARFARIN
     Indication: THROMBOSIS PROPHYLAXIS
     Dosage: 6 MILLIGRAM
     Route: 048
     Dates: start: 20130329
  51. WARFARIN [Concomitant]
     Active Substance: WARFARIN
     Indication: DEEP VEIN THROMBOSIS
     Dosage: 6 MILLIGRAM
     Route: 048
  52. FUROSEMIDE. [Concomitant]
     Active Substance: FUROSEMIDE
     Indication: PRODUCT USED FOR UNKNOWN INDICATION
     Dosage: 40 MILLIGRAM
     Route: 048
  53. PLENDIL [Concomitant]
     Active Substance: FELODIPINE
     Indication: HYPERTENSION
     Dosage: 10 MILLIGRAM
     Route: 048
     Dates: start: 20120907
  54. PROSCAR [Concomitant]
     Active Substance: FINASTERIDE
     Indication: BENIGN PROSTATIC HYPERPLASIA
     Dosage: 5 MILLIGRAM
     Route: 048
     Dates: start: 20120907
  55. CARVEDILOL. [Concomitant]
     Active Substance: CARVEDILOL
     Indication: HYPERTENSION
     Dosage: 12.5 MILLIGRAM
     Route: 048
     Dates: start: 20120907
  56. LUTEIN [Concomitant]
     Active Substance: LUTEIN
     Indication: SUPPLEMENTATION THERAPY
     Dosage: 40 MILLIGRAM
     Route: 048
     Dates: start: 20120907

REACTIONS (5)
  - Spinal stenosis [Recovered/Resolved]
  - Productive cough [Not Recovered/Not Resolved]
  - Fatigue [Recovered/Resolved]
  - Neutropenia [Not Recovered/Not Resolved]
  - Decreased appetite [Not Recovered/Not Resolved]

NARRATIVE: CASE EVENT DATE: 20160419
